FAERS Safety Report 6343984-7 (Version None)
Quarter: 2009Q3

REPORT INFORMATION
  Report Type: 
  Country: None (occurrence: None)
  Receive Date: 20090908
  Receipt Date: 20090902
  Transmission Date: 20100115
  Serious: Yes (Life-Threatening, Hospitalization)
  Sender: FDA-Public Use
  Company Number: GB-CELGENEUS-167-21880-09090148

PATIENT
  Sex: Male

DRUGS (2)
  1. REVLIMID [Suspect]
     Route: 048
     Dates: start: 20090821, end: 20090831
  2. REVLIMID [Suspect]

REACTIONS (1)
  - PERICARDITIS [None]
